FAERS Safety Report 14512508 (Version 1)
Quarter: 2018Q1

REPORT INFORMATION
  Report Type: Spontaneous
  Country: CA (occurrence: CA)
  Receive Date: 20180209
  Receipt Date: 20180209
  Transmission Date: 20180509
  Serious: Yes (Other)
  Sender: FDA-Public Use
  Company Number: CA-FRESENIUS KABI-FK201801572

PATIENT
  Age: 77 Year
  Sex: Female
  Weight: 44 kg

DRUGS (4)
  1. TOBRAMYCIN (MANUFACTURER UNKNOWN) [Suspect]
     Active Substance: TOBRAMYCIN
     Indication: CHRONIC OBSTRUCTIVE PULMONARY DISEASE
     Route: 042
  2. IPRATROPIUM [Concomitant]
     Active Substance: IPRATROPIUM
     Indication: PRODUCT USED FOR UNKNOWN INDICATION
     Route: 065
  3. LEVAQUIN [Concomitant]
     Active Substance: LEVOFLOXACIN
     Indication: PRODUCT USED FOR UNKNOWN INDICATION
     Route: 065
  4. SALBUTAMOL [Concomitant]
     Active Substance: ALBUTEROL
     Indication: PRODUCT USED FOR UNKNOWN INDICATION
     Route: 065

REACTIONS (1)
  - Bronchospasm [Recovered/Resolved]
